FAERS Safety Report 13036327 (Version 1)
Quarter: 2016Q4

REPORT INFORMATION
  Report Type: Spontaneous
  Country: US (occurrence: US)
  Receive Date: 20161216
  Receipt Date: 20161216
  Transmission Date: 20170207
  Serious: No
  Sender: FDA-Public Use
  Company Number: US-PERRIGO-16US020959

PATIENT
  Age: 66 Year
  Sex: Male
  Weight: 68.27 kg

DRUGS (2)
  1. TROSPIUM CHLORIDE. [Suspect]
     Active Substance: TROSPIUM CHLORIDE
     Dosage: 20 MG, QD
     Route: 048
     Dates: start: 20161012
  2. TROSPIUM CHLORIDE. [Suspect]
     Active Substance: TROSPIUM CHLORIDE
     Indication: POLLAKIURIA
     Dosage: 20 MG, QD
     Route: 048
     Dates: start: 201608, end: 20161011

REACTIONS (2)
  - Inappropriate schedule of drug administration [Unknown]
  - Drug ineffective [Unknown]

NARRATIVE: CASE EVENT DATE: 201608
